FAERS Safety Report 4582546-9 (Version None)
Quarter: 2005Q1

REPORT INFORMATION
  Report Type: 
  Country: None (occurrence: None)
  Receive Date: 20050215
  Receipt Date: 20050201
  Transmission Date: 20050727
  Serious: Yes (Death)
  Sender: FDA-Public Use
  Company Number: FR-JNJFOC-20041106608

PATIENT
  Age: 54 Year
  Sex: Female

DRUGS (10)
  1. TOPALGIC [Suspect]
     Indication: SCIATICA
     Route: 049
  2. DICLOFENAC [Concomitant]
     Route: 065
  3. ACETAMINOPHEN [Concomitant]
     Route: 065
  4. PROTON PUMP INHIBITOR [Concomitant]
     Route: 065
  5. SKENAN [Concomitant]
     Indication: SCIATICA
     Route: 065
  6. FORLAX [Concomitant]
     Route: 065
  7. MOTILIUM [Concomitant]
     Route: 049
  8. ACTISKENAN [Concomitant]
     Route: 049
  9. MEPROBAMATE [Concomitant]
     Route: 065
  10. LEVOTHYROX [Concomitant]
     Route: 065

REACTIONS (10)
  - ASPHYXIA [None]
  - ASPIRATION [None]
  - DRUG TOXICITY [None]
  - FOREIGN BODY ASPIRATION [None]
  - HEPATIC CIRRHOSIS [None]
  - OPIATES POSITIVE [None]
  - OVERDOSE [None]
  - PULMONARY HAEMORRHAGE [None]
  - PULMONARY OEDEMA [None]
  - SCIATICA [None]
